FAERS Safety Report 11566465 (Version 1)
Quarter: 2015Q3

REPORT INFORMATION
  Report Type: Spontaneous
  Country: US (occurrence: US)
  Receive Date: 20150916
  Receipt Date: 20150916
  Transmission Date: 20151125
  Serious: No
  Sender: FDA-Public Use
  Company Number: US-ELI_LILLY_AND_COMPANY-US200906002198

PATIENT
  Age: 72 Year
  Sex: Female

DRUGS (3)
  1. FORTEO [Suspect]
     Active Substance: TERIPARATIDE
     Dates: start: 200709
  2. OSCAL [Concomitant]
     Active Substance: CALCIUM CARBONATE
     Dosage: 2 D/F, DAILY (1/D)
  3. VITAMIN D [Concomitant]
     Active Substance: CHOLECALCIFEROL

REACTIONS (5)
  - Fall [Unknown]
  - Foot fracture [Unknown]
  - Drug ineffective [Unknown]
  - Asthma [Unknown]
  - Frustration [Unknown]

NARRATIVE: CASE EVENT DATE: 200905
